FAERS Safety Report 8938056 (Version 1)
Quarter: 2012Q4

REPORT INFORMATION
  Report Type: 
  Country: CA (occurrence: CA)
  Receive Date: 20121130
  Receipt Date: 20121130
  Transmission Date: 20130627
  Serious: Yes (Other)
  Sender: FDA-Public Use
  Company Number: CA-BAYER-2012-125540

PATIENT
  Sex: Female

DRUGS (3)
  1. MIDOL [Suspect]
  2. ASPIRIN [Suspect]
  3. EXCEDRIN NOS [Concomitant]

REACTIONS (2)
  - Contusion [None]
  - Therapeutic response decreased [None]
